FAERS Safety Report 7955658-7 (Version None)
Quarter: 2011Q4

REPORT INFORMATION
  Report Type: 
  Country: None (occurrence: None)
  Receive Date: 20111204
  Receipt Date: 20110901
  Transmission Date: 20120403
  Serious: No
  Sender: FDA-Public Use
  Company Number: US-ALLERGAN-1111705US

PATIENT
  Sex: Male

DRUGS (1)
  1. ACZONE [Suspect]
     Indication: ACNE

REACTIONS (1)
  - DRUG INEFFECTIVE [None]
